FAERS Safety Report 5727968-5 (Version None)
Quarter: 2008Q2

REPORT INFORMATION
  Report Type: 
  Country: None (occurrence: None)
  Receive Date: 20080505
  Receipt Date: 20080429
  Transmission Date: 20081010
  Serious: Yes (Death, Hospitalization)
  Sender: FDA-Public Use
  Company Number: US-BOEHRINGER INGELHEIM GMBH, GERMANY-2007-DE-05655GD

PATIENT
  Age: 50 Year
  Sex: Male

DRUGS (9)
  1. MORPHINE [Suspect]
     Route: 048
  2. FENTANYL [Suspect]
     Indication: BREAKTHROUGH PAIN
     Route: 062
  3. FENTANYL [Suspect]
     Route: 002
  4. CAPECITABINE [Suspect]
     Indication: OESOPHAGEAL CANCER METASTATIC
  5. CAPECITABINE [Suspect]
     Indication: METASTASES TO LIVER
  6. POTASSIUM CHLORIDE [Concomitant]
  7. BUPROPION HCL [Concomitant]
  8. DOCUSATE [Concomitant]
  9. ALPRAZOLAM [Concomitant]

REACTIONS (4)
  - CONSTIPATION [None]
  - DEATH [None]
  - NAUSEA [None]
  - VOMITING [None]
